FAERS Safety Report 9303050 (Version 1)
Quarter: 2013Q2

REPORT INFORMATION
  Report Type: Report from Study
  Country: CA (occurrence: CA)
  Receive Date: 20130522
  Receipt Date: 20130522
  Transmission Date: 20140414
  Serious: Yes (Life-Threatening, Hospitalization)
  Sender: FDA-Public Use
  Company Number: CA-PFIZER INC-2013154266

PATIENT
  Age: 53 Year
  Sex: Female

DRUGS (10)
  1. SUTENT [Suspect]
     Indication: OVARIAN CANCER
     Dosage: 50 MG, CYCLIC (6 WEEK CYCLE)
     Route: 048
     Dates: start: 20130123, end: 20130430
  2. LORAZEPAM [Concomitant]
     Indication: MOOD ALTERED
     Dosage: UNK
     Dates: start: 20120419
  3. LORAZEPAM [Concomitant]
     Indication: ANXIETY
  4. PANTOPRAZOLE [Concomitant]
     Indication: GASTROOESOPHAGEAL REFLUX DISEASE
     Dosage: UNK
     Dates: start: 20120215, end: 20130501
  5. IBUPROFEN [Concomitant]
     Indication: ABDOMINAL PAIN
     Dosage: UNK
     Dates: start: 201202
  6. MAGNESIUM [Concomitant]
     Indication: HYPOMAGNESAEMIA
     Dosage: UNK
     Dates: start: 20130129
  7. MAGNESIUM [Concomitant]
     Indication: HYPOCALCAEMIA
  8. TUMS [Concomitant]
     Indication: GASTROOESOPHAGEAL REFLUX DISEASE
     Dosage: UNK
     Dates: start: 20130222
  9. AMILORIDE [Concomitant]
     Indication: HYPERTENSION
     Dosage: UNK
     Dates: start: 20130222
  10. LOPERAMIDE [Concomitant]
     Indication: DIARRHOEA
     Dosage: UNK
     Dates: start: 20130222

REACTIONS (3)
  - Hypomagnesaemia [Not Recovered/Not Resolved]
  - Hypocalcaemia [Recovered/Resolved]
  - Hypothyroidism [Recovered/Resolved with Sequelae]
